FAERS Safety Report 8613065-8 (Version None)
Quarter: 2012Q3

REPORT INFORMATION
  Report Type: 
  Country: None (occurrence: None)
  Receive Date: 20120822
  Receipt Date: 20120710
  Transmission Date: 20120928
  Serious: No
  Sender: FDA-Public Use
  Company Number: US-009507513-1207USA003398

PATIENT

DRUGS (1)
  1. DULERA [Suspect]
     Dosage: UNK
     Dates: start: 20110101

REACTIONS (1)
  - DRUG ADMINISTERED TO PATIENT OF INAPPROPRIATE AGE [None]
